FAERS Safety Report 5695413-4 (Version None)
Quarter: 2008Q2

REPORT INFORMATION
  Report Type: 
  Country: None (occurrence: None)
  Receive Date: 20080403
  Receipt Date: 20080327
  Transmission Date: 20081010
  Serious: Yes (Other)
  Sender: FDA-Public Use
  Company Number: 08H-163-0314067-00

PATIENT
  Age: 66 Year
  Sex: Female

DRUGS (1)
  1. DOBUTAMINE AND DEXTROSE SOLUTION (DOBUTAMINE/DEXTROSE SOLUTION) (DOBUT [Suspect]
     Indication: SCAN MYOCARDIAL PERFUSION
     Dosage: INFUSION

REACTIONS (2)
  - ELECTROCARDIOGRAM ST SEGMENT ELEVATION [None]
  - STRESS CARDIOMYOPATHY [None]
